FAERS Safety Report 21749981 (Version 11)
Quarter: 2023Q4

REPORT INFORMATION
  Report Type: Report from Study
  Country: CA (occurrence: CA)
  Receive Date: 20221219
  Receipt Date: 20231229
  Transmission Date: 20240110
  Serious: Yes (Hospitalization, Other)
  Sender: FDA-Public Use
  Company Number: CA-TAKEDA-2022TUS096413

PATIENT
  Age: 54 Year
  Sex: Female

DRUGS (7)
  1. VEDOLIZUMAB [Suspect]
     Active Substance: VEDOLIZUMAB
     Indication: Colitis ulcerative
     Dosage: 300 MILLIGRAM
     Route: 042
     Dates: start: 20210317
  2. VEDOLIZUMAB [Suspect]
     Active Substance: VEDOLIZUMAB
     Dosage: 300 MILLIGRAM
     Route: 042
     Dates: start: 20230616
  3. VEDOLIZUMAB [Suspect]
     Active Substance: VEDOLIZUMAB
     Dosage: 300 MILLIGRAM
     Route: 042
  4. VEDOLIZUMAB [Suspect]
     Active Substance: VEDOLIZUMAB
     Dosage: 300 MILLIGRAM, Q4WEEKS
     Route: 042
     Dates: start: 20230911
  5. VEDOLIZUMAB [Suspect]
     Active Substance: VEDOLIZUMAB
     Dosage: 300 MILLIGRAM, Q4WEEKS
     Route: 042
     Dates: end: 20231206
  6. PREDNISONE [Concomitant]
     Active Substance: PREDNISONE
     Dosage: UNK
     Dates: start: 20210305
  7. MESALAMINE [Concomitant]
     Active Substance: MESALAMINE
     Dosage: UNK UNK, QD
     Dates: start: 2012

REACTIONS (19)
  - Rectal haemorrhage [Unknown]
  - Colitis ulcerative [Recovering/Resolving]
  - Transitional cell carcinoma [Not Recovered/Not Resolved]
  - Thyroiditis subacute [Unknown]
  - Thyroid mass [Unknown]
  - Weight decreased [Unknown]
  - Abdominal discomfort [Unknown]
  - Alopecia [Unknown]
  - Blood iron decreased [Unknown]
  - Mucous stools [Unknown]
  - Diarrhoea [Recovering/Resolving]
  - Defaecation urgency [Unknown]
  - Asthenia [Unknown]
  - Pallor [Unknown]
  - Therapy non-responder [Unknown]
  - Off label use [Unknown]
  - Abdominal pain [Recovering/Resolving]
  - Night sweats [Unknown]
  - Nausea [Unknown]

NARRATIVE: CASE EVENT DATE: 20230911
